FAERS Safety Report 25421658 (Version 1)
Quarter: 2025Q2

REPORT INFORMATION
  Report Type: Spontaneous
  Country: JP (occurrence: JP)
  Receive Date: 20250611
  Receipt Date: 20250611
  Transmission Date: 20250716
  Serious: Yes (Hospitalization)
  Sender: CATALYST PHARMA
  Company Number: JP-CATALYSTPHARMACEUTICALPARTNERS-JP-CATA-25-00816

PATIENT
  Sex: Male

DRUGS (4)
  1. PERAMPANEL [Suspect]
     Active Substance: PERAMPANEL
     Indication: Frontal lobe epilepsy
     Route: 042
  2. PERAMPANEL [Suspect]
     Active Substance: PERAMPANEL
     Route: 048
  3. LEVETIRACETAM [Concomitant]
     Active Substance: LEVETIRACETAM
     Indication: Product used for unknown indication
     Route: 065
  4. OLANZAPINE [Concomitant]
     Active Substance: OLANZAPINE
     Indication: Product used for unknown indication
     Route: 065

REACTIONS (9)
  - Loss of personal independence in daily activities [Unknown]
  - Pyrexia [Recovering/Resolving]
  - Blood creatine phosphokinase increased [Unknown]
  - Hallucination, auditory [Recovered/Resolved]
  - Hallucination [Unknown]
  - Delusion [Unknown]
  - Dysphagia [Unknown]
  - Psychomotor hyperactivity [Recovered/Resolved]
  - Off label use [Unknown]
